FAERS Safety Report 4626723-7 (Version None)
Quarter: 2005Q2

REPORT INFORMATION
  Report Type: 
  Country: None (occurrence: None)
  Receive Date: 20050405
  Receipt Date: 20050127
  Transmission Date: 20051028
  Serious: Yes (Other)
  Sender: FDA-Public Use
  Company Number: 200510683US

PATIENT
  Sex: Female
  Weight: 102.3 kg

DRUGS (6)
  1. ARAVA [Suspect]
     Indication: RHEUMATOID ARTHRITIS
     Route: 048
     Dates: start: 20020101, end: 20041206
  2. ENBREL [Concomitant]
     Dosage: DOSE: NOT PROVIDED
  3. PAXIL [Concomitant]
     Dosage: DOSE: NOT PROVIDED
     Dates: start: 20041210
  4. FOLIC ACID [Concomitant]
     Dosage: DOSE: NOT PROVIDED
     Dates: start: 20020101, end: 20041213
  5. HYDROCHLOROTHIAZIDE [Concomitant]
     Dosage: DOSE: NOT PROVIDED
     Dates: start: 20041206
  6. CALCIUM CARBONATE [Concomitant]
     Dosage: DOSE: NOT PROVIDED
     Dates: start: 20041214

REACTIONS (2)
  - ABORTION SPONTANEOUS [None]
  - PREGNANCY [None]
